FAERS Safety Report 14656874 (Version 1)
Quarter: 2018Q1

REPORT INFORMATION
  Report Type: Spontaneous
  Country: US (occurrence: US)
  Receive Date: 20180319
  Receipt Date: 20180319
  Transmission Date: 20180509
  Serious: No
  Sender: FDA-Public Use
  Company Number: US-SA-2017SA110695

PATIENT
  Sex: Male

DRUGS (1)
  1. NASACORT ALLERGY 24HR [Suspect]
     Active Substance: TRIAMCINOLONE ACETONIDE
     Dosage: 10 OR MORE SPRAYS IN A 24 HOUR PERIOD, SPRAY
     Route: 065

REACTIONS (2)
  - Unevaluable event [Unknown]
  - Dizziness [Unknown]
